FAERS Safety Report 25937716 (Version 2)
Quarter: 2025Q4

REPORT INFORMATION
  Report Type: Spontaneous
  Country: MX (occurrence: MX)
  Receive Date: 20251018
  Receipt Date: 20251028
  Transmission Date: 20260118
  Serious: Yes (Hospitalization, Other)
  Sender: UNITED THERAPEUTICS
  Company Number: MX-UNITED THERAPEUTICS-UNT-2025-016852

PATIENT
  Age: 57 Year
  Weight: 60 kg

DRUGS (11)
  1. REMODULIN [Suspect]
     Active Substance: TREPROSTINIL
     Indication: Pulmonary arterial hypertension
     Dosage: UNK [0.3 U/H (0.003 ML/HR)], CONTINUING
  2. REMODULIN [Suspect]
     Active Substance: TREPROSTINIL
     Dosage: UNK, CONTINUING [RESTARTED DOSE]
  3. REMODULIN [Suspect]
     Active Substance: TREPROSTINIL
     Dosage: UNK [0.6 U/H (0.006 ML/HR)], CONTINUING
  4. REMODULIN [Suspect]
     Active Substance: TREPROSTINIL
     Dosage: UNK [1.0 U/H (0.01 ML/HR)], CONTINUING
  5. REMODULIN [Suspect]
     Active Substance: TREPROSTINIL
     Dosage: UNK [1.60 U/H (0.016 ML/HR)], CONTINUING
  6. REMODULIN [Suspect]
     Active Substance: TREPROSTINIL
     Dosage: UNK [2.60 U/H (0.026 ML/HR)], CONTINUING
  7. REMODULIN [Suspect]
     Active Substance: TREPROSTINIL
     Dosage: UNK [2 U/H (0.02 ML/HR)], CONTINUING
  8. REMODULIN [Suspect]
     Active Substance: TREPROSTINIL
     Dosage: UNK [2.90 U/H (0.029 ML/HR)], CONTINUING
  9. REMODULIN [Suspect]
     Active Substance: TREPROSTINIL
     Dosage: UNK [4.50 U/H (0.0450 ML/HR)], CONTINUING
  10. REMODULIN [Suspect]
     Active Substance: TREPROSTINIL
     Dosage: UNK, CONTINUING
  11. SILDENAFIL [Concomitant]
     Active Substance: SILDENAFIL
     Indication: Product used for unknown indication
     Dosage: UNK

REACTIONS (28)
  - Swelling face [Recovering/Resolving]
  - Infusion site pain [Not Recovered/Not Resolved]
  - Infusion site warmth [Not Recovered/Not Resolved]
  - Infusion site swelling [Not Recovered/Not Resolved]
  - Renal impairment [Recovering/Resolving]
  - Catheter site haemorrhage [Unknown]
  - Vomiting [Recovering/Resolving]
  - Muscle strain [Recovering/Resolving]
  - Infusion site erythema [Recovering/Resolving]
  - Headache [Recovering/Resolving]
  - Anxiety [Recovering/Resolving]
  - Pruritus [Not Recovered/Not Resolved]
  - Urticaria [Not Recovered/Not Resolved]
  - Varicose vein [Not Recovered/Not Resolved]
  - Dry skin [Not Recovered/Not Resolved]
  - Infusion site inflammation [Recovering/Resolving]
  - Infusion site extravasation [Recovering/Resolving]
  - Infusion site discharge [Not Recovered/Not Resolved]
  - Infusion site induration [Recovering/Resolving]
  - Product administration interrupted [Recovered/Resolved]
  - Peripheral swelling [Recovering/Resolving]
  - Catheter site scar [Recovering/Resolving]
  - Fatigue [Recovering/Resolving]
  - Bowel movement irregularity [Recovering/Resolving]
  - Hypertension [Recovering/Resolving]
  - Cardiac disorder [Recovering/Resolving]
  - Intracardiac pressure increased [Not Recovered/Not Resolved]
  - Vascular compression [Recovering/Resolving]
